FAERS Safety Report 10060315 (Version 2)
Quarter: 2014Q2

REPORT INFORMATION
  Report Type: Spontaneous
  Country: TR (occurrence: TR)
  Receive Date: 20140404
  Receipt Date: 20140507
  Transmission Date: 20141212
  Serious: Yes (Other)
  Sender: FDA-Public Use
  Company Number: TR-VERTEX PHARMACEUTICALS INC-2014-001757

PATIENT
  Sex: 0

DRUGS (4)
  1. INCIVO [Suspect]
     Indication: CHRONIC HEPATITIS C
     Route: 048
  2. INCIVO [Suspect]
     Indication: HEPATITIS C
     Route: 048
  3. RIBAVIRIN [Suspect]
     Indication: CHRONIC HEPATITIS C
  4. PEGINTERFERON ALFA [Suspect]
     Indication: CHRONIC HEPATITIS C

REACTIONS (1)
  - Thyroiditis [Unknown]
